FAERS Safety Report 19678307 (Version 15)
Quarter: 2023Q2

REPORT INFORMATION
  Report Type: Report from Study
  Country: TR (occurrence: None)
  Receive Date: 20210809
  Receipt Date: 20230413
  Transmission Date: 20230722
  Serious: Yes (Hospitalization)
  Sender: FDA-Public Use
  Company Number: TR-ROCHE-2882466

PATIENT
  Age: 72 Year
  Sex: Male
  Weight: 67.5 kg

DRUGS (26)
  1. ATEZOLIZUMAB [Suspect]
     Active Substance: ATEZOLIZUMAB
     Indication: Malignant neoplasm of unknown primary site
     Dosage: ON 06/JUL/2021, HE RECEIVED LAST DOSE OF ATEZOLIZUMAB (1200 MG) PRIOR TO ONSET OF SERIOUS ADVERSE EV
     Route: 041
     Dates: start: 20210525
  2. CARBOPLATIN [Suspect]
     Active Substance: CARBOPLATIN
     Indication: Malignant neoplasm of unknown primary site
     Dosage: ON 27/APR/2021, HE RECEIVED LAST DOSE OF CARBOPLATIN (500 MG) PRIOR TO ONSET OF SERIOUS ADVERSE EVEN
     Route: 042
     Dates: start: 20210310
  3. CARBOPLATIN [Suspect]
     Active Substance: CARBOPLATIN
     Dosage: ON 06/JUL/2021, HE RECEIVED LAST DOSE OF CARBOPLATIN (500 MG) PRIOR TO ONSET OF SERIOUS ADVERSE EVEN
     Route: 042
     Dates: start: 20210525
  4. PACLITAXEL [Suspect]
     Active Substance: PACLITAXEL
     Indication: Malignant neoplasm of unknown primary site
     Dosage: ON 27/APR/2021, HE RECEIVED LAST DOSE OF PACLITAXEL (300 MG) PRIOR TO ONSET OF SERIOUS ADVERSE EVENT
     Route: 042
     Dates: start: 20210310
  5. PACLITAXEL [Suspect]
     Active Substance: PACLITAXEL
     Dosage: ON 06/JUL/2021, HE RECEIVED LAST DOSE OF PACLITAXEL (300 MG) PRIOR TO ONSET OF SERIOUS ADVERSE EVENT
     Route: 042
     Dates: start: 20210525
  6. METOPROLOL SUCCINATE [Concomitant]
     Active Substance: METOPROLOL SUCCINATE
     Route: 048
  7. ASPIRIN [Concomitant]
     Active Substance: ASPIRIN
     Route: 048
  8. FELODIPINE [Concomitant]
     Active Substance: FELODIPINE
     Route: 048
  9. PHENIRAMINE HYDROGEN MALEATE [Concomitant]
     Route: 042
     Dates: start: 20210525, end: 20210525
  10. PALONOSETRON HYDROCHLORIDE [Concomitant]
     Active Substance: PALONOSETRON HYDROCHLORIDE
     Route: 042
     Dates: start: 20210525, end: 20210525
  11. PALONOSETRON HYDROCHLORIDE [Concomitant]
     Active Substance: PALONOSETRON HYDROCHLORIDE
     Route: 042
     Dates: start: 20210615, end: 20210615
  12. PANTOPRAZOLE SODIUM [Concomitant]
     Active Substance: PANTOPRAZOLE SODIUM
     Route: 042
     Dates: start: 20210525, end: 20210525
  13. DEXAMETHASONE [Concomitant]
     Active Substance: DEXAMETHASONE
     Route: 042
     Dates: start: 20210615, end: 20210615
  14. DEXAMETHASONE [Concomitant]
     Active Substance: DEXAMETHASONE
     Route: 042
     Dates: start: 20210706, end: 20210706
  15. DEXAMETHASONE [Concomitant]
     Active Substance: DEXAMETHASONE
     Route: 042
     Dates: start: 20210525, end: 20210525
  16. PHENIRAMINE HYDROGEN MALEATE [Concomitant]
     Route: 042
     Dates: start: 20210615, end: 20210615
  17. PHENIRAMINE HYDROGEN MALEATE [Concomitant]
     Route: 042
     Dates: start: 20210706, end: 20210706
  18. ZINC SULFATE MONOHYDRATE [Concomitant]
     Active Substance: ZINC SULFATE MONOHYDRATE
     Route: 048
     Dates: start: 20210623
  19. MAGNESIUM OXIDE [Concomitant]
     Active Substance: MAGNESIUM OXIDE
     Route: 048
     Dates: start: 20210623
  20. MAGNESIUM OXIDE [Concomitant]
     Active Substance: MAGNESIUM OXIDE
     Route: 048
     Dates: start: 20210803
  21. PREGABALIN [Concomitant]
     Active Substance: PREGABALIN
     Indication: Neuropathy peripheral
     Route: 048
     Dates: start: 20210811
  22. PIPERACILLIN SODIUM\TAZOBACTAM SODIUM [Concomitant]
     Active Substance: PIPERACILLIN SODIUM\TAZOBACTAM SODIUM
     Indication: Device related infection
     Route: 042
     Dates: start: 20210808
  23. ONDANSETRON HYDROCHLORIDE [Concomitant]
     Active Substance: ONDANSETRON HYDROCHLORIDE
     Route: 042
     Dates: start: 20210808
  24. METADEM [Concomitant]
     Indication: Device related infection
     Route: 042
     Dates: start: 20210808
  25. ACETAMINOPHEN [Concomitant]
     Active Substance: ACETAMINOPHEN
     Indication: Device related infection
     Route: 042
     Dates: start: 20210809, end: 20210809
  26. INSULIN GLARGINE [Concomitant]
     Active Substance: INSULIN GLARGINE
     Route: 042
     Dates: start: 20210810

REACTIONS (1)
  - Liver function test abnormal [Not Recovered/Not Resolved]

NARRATIVE: CASE EVENT DATE: 20210727
